FAERS Safety Report 13898542 (Version 1)
Quarter: 2017Q3

REPORT INFORMATION
  Report Type: Spontaneous
  Country: US (occurrence: None)
  Receive Date: 20170817
  Receipt Date: 20170817
  Transmission Date: 20171127
  Serious: No
  Sender: FDA-Public Use
  Company Number: None

PATIENT
  Age: 79 Year
  Sex: Female
  Weight: 56.7 kg

DRUGS (4)
  1. NORVASC [Concomitant]
     Active Substance: AMLODIPINE BESYLATE
  2. ATENOLOL. [Concomitant]
     Active Substance: ATENOLOL
  3. AZITHROMYCIN 250MG [Suspect]
     Active Substance: AZITHROMYCIN ANHYDROUS
     Indication: BRONCHITIS
     Dosage: 6 PILLS 2 FIRST DAY THEN 1- FOR 4 DAYS BY MOUTH??EXPERITATION DAY: 9-19- NO YEAR
     Route: 048
     Dates: start: 20170706, end: 20170706
  4. CENTRUM [Concomitant]
     Active Substance: VITAMINS

REACTIONS (5)
  - Vomiting [None]
  - Diarrhoea [None]
  - Nausea [None]
  - Muscle spasms [None]
  - Haematochezia [None]

NARRATIVE: CASE EVENT DATE: 20170706
